FAERS Safety Report 24710120 (Version 1)
Quarter: 2024Q4

REPORT INFORMATION
  Report Type: Spontaneous
  Country: US (occurrence: US)
  Receive Date: 20241209
  Receipt Date: 20241209
  Transmission Date: 20250115
  Serious: Yes (Hospitalization, Other)
  Sender: ZYDUS PHARM
  Company Number: US-CADILA HEALTHCARE LIMITED-US-ZYDUS-115357

PATIENT

DRUGS (1)
  1. AMLODIPINE [Suspect]
     Active Substance: AMLODIPINE BESYLATE
     Indication: Product used for unknown indication
     Dosage: 900 MILLIGRAM
     Route: 065

REACTIONS (8)
  - Distributive shock [Unknown]
  - Acute kidney injury [Unknown]
  - Metabolic function test abnormal [Unknown]
  - Acute respiratory distress syndrome [Unknown]
  - Peripheral ischaemia [Unknown]
  - Respiratory failure [Unknown]
  - Toxicity to various agents [Unknown]
  - Intentional overdose [Unknown]
